FAERS Safety Report 15309510 (Version 4)
Quarter: 2018Q3

REPORT INFORMATION
  Report Type: Report from Study
  Country: DE (occurrence: DE)
  Receive Date: 20180823
  Receipt Date: 20180831
  Transmission Date: 20181010
  Serious: Yes (Death, Hospitalization, Other)
  Sender: FDA-Public Use
  Company Number: DE-BRISTOL-MYERS SQUIBB COMPANY-BMS-2018-034796

PATIENT
  Age: 82 Year
  Sex: Female

DRUGS (8)
  1. TILIDIN [Concomitant]
     Active Substance: NALOXONE HYDROCHLORIDE\TILIDINE HYDROCHLORIDE
     Indication: PRODUCT USED FOR UNKNOWN INDICATION
     Dosage: 100 MG, UNK
     Route: 065
  2. PANTOPRAZOL                        /01263201/ [Concomitant]
     Active Substance: PANTOPRAZOLE
     Indication: PROPHYLAXIS
     Dosage: 20 MG, UNK
     Route: 065
  3. CLEXANE [Concomitant]
     Active Substance: ENOXAPARIN SODIUM
     Indication: PROPHYLAXIS
     Dosage: 40 MG, UNK
     Route: 065
     Dates: start: 20180319, end: 20180329
  4. NIVOLUMAB [Suspect]
     Active Substance: NIVOLUMAB
     Indication: SQUAMOUS CELL CARCINOMA OF HEAD AND NECK
     Dosage: 3 MG/KG, Q2WK
     Route: 042
     Dates: start: 20171102, end: 20180316
  5. L?THYROXIN                         /00068001/ [Concomitant]
     Active Substance: LEVOTHYROXINE
     Indication: PRODUCT USED FOR UNKNOWN INDICATION
     Dosage: 75 ?G, UNK
     Route: 065
     Dates: start: 20180321
  6. VERAPAMIL [Concomitant]
     Active Substance: VERAPAMIL HYDROCHLORIDE
     Indication: CEREBROVASCULAR DISORDER
     Dosage: 80 MG, UNK
     Route: 065
  7. FRESUBIN                           /07459901/ [Concomitant]
     Active Substance: CARBOHYDRATES\FATTY ACIDS\MINERALS\PROTEIN\VITAMINS
     Indication: PRODUCT USED FOR UNKNOWN INDICATION
     Dosage: 1 DF, UNK
     Route: 065
     Dates: start: 20180109
  8. L?THYROXIN                         /00068001/ [Concomitant]
     Active Substance: LEVOTHYROXINE
     Indication: PRODUCT USED FOR UNKNOWN INDICATION
     Dosage: 50 ?G, UNK
     Route: 065
     Dates: start: 20180222, end: 20180320

REACTIONS (10)
  - Pneumonia aspiration [Fatal]
  - Malignant neoplasm progression [Fatal]
  - Intervertebral discitis [Recovered/Resolved]
  - Tumour ulceration [Not Recovered/Not Resolved]
  - Insomnia [Not Recovered/Not Resolved]
  - Back pain [Recovered/Resolved]
  - Dyspnoea [Not Recovered/Not Resolved]
  - Fatigue [Not Recovered/Not Resolved]
  - Catheter site thrombosis [Not Recovered/Not Resolved]
  - Hypothyroidism [Not Recovered/Not Resolved]

NARRATIVE: CASE EVENT DATE: 20180118
